FAERS Safety Report 4833616-9 (Version None)
Quarter: 2005Q4

REPORT INFORMATION
  Report Type: 
  Country: None (occurrence: None)
  Receive Date: 20051121
  Receipt Date: 20051004
  Transmission Date: 20060501
  Serious: Yes (Other)
  Sender: FDA-Public Use
  Company Number: PHNU2005DE03344

PATIENT
  Age: 54 Year
  Sex: Male
  Weight: 66.8 kg

DRUGS (3)
  1. CLOZARIL [Suspect]
     Indication: PSYCHOTIC DISORDER
     Dosage: UP TO 75MG/DAY
     Route: 048
     Dates: start: 20050927, end: 20050930
  2. VENLAFAXINE HCL [Suspect]
     Indication: DEPRESSION
     Dosage: UP TO 112.5 MG, QD
     Route: 048
     Dates: start: 20050928, end: 20051001
  3. DANICAL [Concomitant]
     Indication: SLEEP DISORDER
     Dosage: 120 MG, QD
     Route: 048
     Dates: start: 20050927, end: 20050930

REACTIONS (8)
  - ANTICHOLINERGIC SYNDROME [None]
  - ASPARTATE AMINOTRANSFERASE INCREASED [None]
  - BLOOD CREATINE PHOSPHOKINASE INCREASED [None]
  - BRADYPHRENIA [None]
  - DELUSION [None]
  - DISORIENTATION [None]
  - DRUG INTERACTION [None]
  - RESTLESSNESS [None]
